FAERS Safety Report 21111609 (Version 2)
Quarter: 2023Q1

REPORT INFORMATION
  Report Type: Other
  Country: US (occurrence: None)
  Receive Date: 20220721
  Receipt Date: 20230313
  Transmission Date: 20230417
  Serious: No
  Sender: FDA-Public Use
  Company Number: US-ROCHE-3138187

PATIENT

DRUGS (6)
  1. OCRELIZUMAB [Suspect]
     Active Substance: OCRELIZUMAB
     Indication: Multiple sclerosis
     Route: 065
  2. BACLOFEN [Concomitant]
     Active Substance: BACLOFEN
  3. MOTRIN [Concomitant]
     Active Substance: IBUPROFEN
  4. ALEVE [Concomitant]
     Active Substance: NAPROXEN SODIUM
  5. GABAPENTIN [Concomitant]
     Active Substance: GABAPENTIN
  6. TYLENOL [Concomitant]
     Active Substance: ACETAMINOPHEN

REACTIONS (6)
  - Upper respiratory tract infection [Recovered/Resolved]
  - Fall [Unknown]
  - Muscle spasms [Not Recovered/Not Resolved]
  - Band sensation [Recovered/Resolved]
  - Urinary incontinence [Unknown]
  - COVID-19 [Recovered/Resolved]
